FAERS Safety Report 9139919 (Version 1)
Quarter: 2013Q1

REPORT INFORMATION
  Report Type: Spontaneous
  Country: US (occurrence: US)
  Receive Date: 20130305
  Receipt Date: 20130305
  Transmission Date: 20140127
  Serious: Yes (Hospitalization)
  Sender: FDA-Public Use
  Company Number: US-JNJFOC-20130216126

PATIENT
  Age: 62 Year
  Sex: Female

DRUGS (3)
  1. DOXORUBICIN HYDROCHLORIDE (DOXIL) [Suspect]
     Indication: PRODUCT USED FOR UNKNOWN INDICATION
     Dosage: 3 DOSES ABOUT ONCE A MONTH
     Route: 042
     Dates: start: 201211
  2. BACTRIM [Suspect]
     Indication: PRODUCT USED FOR UNKNOWN INDICATION
     Route: 065
  3. DOXYCYCLINE [Concomitant]
     Route: 065

REACTIONS (2)
  - Stevens-Johnson syndrome [Unknown]
  - Renal impairment [Unknown]
